FAERS Safety Report 4949050-7 (Version None)
Quarter: 2006Q1

REPORT INFORMATION
  Report Type: 
  Country: None (occurrence: None)
  Receive Date: 20060321
  Receipt Date: 20060310
  Transmission Date: 20060701
  Serious: Yes (Hospitalization)
  Sender: FDA-Public Use
  Company Number: FR-GLAXOSMITHKLINE-B0415531A

PATIENT
  Age: 49 Year
  Sex: Male

DRUGS (3)
  1. DEROXAT [Suspect]
     Dosage: 1UNIT PER DAY
     Route: 048
     Dates: end: 20060106
  2. SOLIAN [Suspect]
     Dosage: 200MG PER DAY
     Route: 048
     Dates: end: 20060106
  3. NOCTAMIDE [Suspect]
     Dosage: 1TAB PER DAY
     Route: 048
     Dates: end: 20060106

REACTIONS (10)
  - CONFUSIONAL STATE [None]
  - DISORIENTATION [None]
  - DRY MOUTH [None]
  - LEUKOCYTOSIS [None]
  - NEUROLEPTIC MALIGNANT SYNDROME [None]
  - PSYCHOMOTOR HYPERACTIVITY [None]
  - PYREXIA [None]
  - RHABDOMYOLYSIS [None]
  - SEROTONIN SYNDROME [None]
  - URINARY RETENTION [None]
